FAERS Safety Report 14255505 (Version 2)
Quarter: 2018Q1

REPORT INFORMATION
  Report Type: Report from Study
  Country: US (occurrence: HU)
  Receive Date: 20171206
  Receipt Date: 20180206
  Transmission Date: 20180508
  Serious: Yes (Other)
  Sender: FDA-Public Use
  Company Number: US-SUNOVION-2017SUN005200

PATIENT

DRUGS (2)
  1. INDACATEROL AND GLYCOPYRROLATE [Suspect]
     Active Substance: GLYCOPYRROLATE\INDACATEROL MALEATE
     Indication: CHRONIC OBSTRUCTIVE PULMONARY DISEASE
     Dosage: 1 DF, QD
     Route: 055
     Dates: start: 20171102, end: 20171207
  2. BERODUAL [Concomitant]
     Active Substance: FENOTEROL HYDROBROMIDE\IPRATROPIUM BROMIDE

REACTIONS (15)
  - Cardiac disorder [Unknown]
  - Decreased appetite [Recovering/Resolving]
  - Nervous system disorder [Unknown]
  - Obesity [Unknown]
  - Asthenia [Unknown]
  - Glaucoma [Unknown]
  - Dyspnoea exertional [Recovered/Resolved]
  - Visual impairment [Unknown]
  - Cataract [Unknown]
  - Cough [Recovered/Resolved]
  - Prostatic disorder [Unknown]
  - Bronchitis [Recovered/Resolved]
  - Ageusia [Recovering/Resolving]
  - Hypoacusis [Unknown]
  - Bronchitis [Unknown]

NARRATIVE: CASE EVENT DATE: 2017
